FAERS Safety Report 10962585 (Version 1)
Quarter: 2015Q1

REPORT INFORMATION
  Report Type: Spontaneous
  Country: IE (occurrence: IE)
  Receive Date: 20150327
  Receipt Date: 20150327
  Transmission Date: 20150721
  Serious: Yes (Hospitalization)
  Sender: FDA-Public Use
  Company Number: IE-MYLANLABS-2015M1009893

PATIENT

DRUGS (1)
  1. LITHIUM [Suspect]
     Active Substance: LITHIUM CARBONATE
     Indication: BIPOLAR DISORDER
     Route: 065

REACTIONS (5)
  - Glomerulosclerosis [Unknown]
  - Kidney fibrosis [Unknown]
  - Tubulointerstitial nephritis [Unknown]
  - Renal cyst [Unknown]
  - Nephrosclerosis [Unknown]
